FAERS Safety Report 8386631-5 (Version None)
Quarter: 2012Q2

REPORT INFORMATION
  Report Type: 
  Country: None (occurrence: None)
  Receive Date: 20120525
  Receipt Date: 20120202
  Transmission Date: 20120825
  Serious: No
  Sender: FDA-Public Use
  Company Number: US-GLAXOSMITHKLINE-A0964362A

PATIENT
  Age: 66 Year
  Sex: Female
  Weight: 59.1 kg

DRUGS (5)
  1. ZOFRAN [Concomitant]
  2. COMPAZINE [Concomitant]
  3. ATIVAN [Concomitant]
  4. LEXAPRO [Concomitant]
     Dates: start: 20110101
  5. HYCAMTIN [Suspect]
     Indication: SMALL CELL LUNG CANCER STAGE UNSPECIFIED
     Dosage: 2.6MG FIVE TIMES PER WEEK
     Route: 042
     Dates: start: 20120116

REACTIONS (1)
  - RASH [None]
